FAERS Safety Report 14314588 (Version 2)
Quarter: 2018Q1

REPORT INFORMATION
  Report Type: Report from Study
  Country: None (occurrence: US)
  Receive Date: 20171221
  Receipt Date: 20180111
  Transmission Date: 20180509
  Serious: Yes (Death, Hospitalization)
  Sender: FDA-Public Use
  Company Number: US-VIFOR (INTERNATIONAL) INC.-VIT-2017-13847

PATIENT
  Age: 87 Year
  Sex: Female

DRUGS (16)
  1. VELTASSA [Suspect]
     Active Substance: PATIROMER
     Indication: HYPERKALAEMIA
     Route: 048
     Dates: start: 201701, end: 20171129
  2. BIFIDOBACTERIUM LACTIS [Concomitant]
     Active Substance: BIFIDOBACTERIUM ANIMALIS LACTIS
  3. RANITIDINE. [Concomitant]
     Active Substance: RANITIDINE
  4. AMLODIPINE [Concomitant]
     Active Substance: AMLODIPINE BESYLATE
  5. COLECALCIFEROL [Concomitant]
     Active Substance: CHOLECALCIFEROL
  6. ACETYLSALICYLIC ACID [Concomitant]
     Active Substance: ASPIRIN
  7. FISH OIL [Concomitant]
     Active Substance: FISH OIL
  8. ASCORBIC ACID. [Concomitant]
     Active Substance: ASCORBIC ACID
  9. COQ10 [Concomitant]
     Active Substance: UBIDECARENONE
  10. EPOGEN [Concomitant]
     Active Substance: ERYTHROPOIETIN
  11. GUANFACINE. [Concomitant]
     Active Substance: GUANFACINE
  12. HYDRALAZINE [Concomitant]
     Active Substance: HYDRALAZINE HYDROCHLORIDE
  13. ISOSORBIDE MONONITRATE. [Concomitant]
     Active Substance: ISOSORBIDE MONONITRATE
  14. PYRIDOXINE HYDROCHLORIDE~~THIAMINE HYDROCHLORIDE~~RIBOFLAVIN~~NICOTINAMIDE~~CALCIUM PANTOTHENATE [Concomitant]
  15. BIOTIN [Concomitant]
     Active Substance: BIOTIN
  16. GLIPIZIDE. [Concomitant]
     Active Substance: GLIPIZIDE

REACTIONS (9)
  - Diarrhoea [Unknown]
  - Asthenia [Recovered/Resolved]
  - Death [Fatal]
  - Dehydration [Unknown]
  - Cardiomyopathy [Recovered/Resolved]
  - Dysphagia [Unknown]
  - Vomiting [Unknown]
  - Malaise [Unknown]
  - Hypertension [Unknown]

NARRATIVE: CASE EVENT DATE: 2017
